FAERS Safety Report 8556055-6 (Version None)
Quarter: 2012Q3

REPORT INFORMATION
  Report Type: 
  Country: None (occurrence: None)
  Receive Date: 20120719
  Receipt Date: 20120704
  Transmission Date: 20120928
  Serious: Yes (Disabling, Other)
  Sender: FDA-Public Use
  Company Number: 2012MPI00183

PATIENT
  Age: 29 Year
  Sex: Male

DRUGS (1)
  1. BRENTUXIMAB VEDOTIN (BRENTUXIMAB VEDOTIN) INJECTION [Suspect]
     Indication: HODGKIN'S DISEASE
     Dosage: 130 MG, QCYCLE, INTRAVENOUS
     Route: 042
     Dates: start: 20110921, end: 20120404

REACTIONS (1)
  - NEUROPATHY PERIPHERAL [None]
